FAERS Safety Report 7759467-3 (Version None)
Quarter: 2011Q3

REPORT INFORMATION
  Report Type: 
  Country: None (occurrence: None)
  Receive Date: 20110919
  Receipt Date: 20110908
  Transmission Date: 20111222
  Serious: Yes (Hospitalization)
  Sender: FDA-Public Use
  Company Number: BR-ASTRAZENECA-2011SE54175

PATIENT
  Age: 43 Year
  Sex: Female

DRUGS (1)
  1. ATACAND HCT [Suspect]
     Indication: HYPERTENSION
     Dosage: 8/12.5 MG
     Route: 048

REACTIONS (4)
  - DENGUE FEVER [None]
  - HYPOTENSION [None]
  - DEHYDRATION [None]
  - HEART RATE INCREASED [None]
